FAERS Safety Report 23805047 (Version 1)
Quarter: 2024Q2

REPORT INFORMATION
  Report Type: Spontaneous
  Country: US (occurrence: US)
  Receive Date: 20240502
  Receipt Date: 20240502
  Transmission Date: 20240716
  Serious: No
  Sender: FDA-Public Use
  Company Number: US-BIOGEN-2024BI01262355

PATIENT
  Age: 28 Year
  Sex: Female

DRUGS (2)
  1. ZURZUVAE [Suspect]
     Active Substance: ZURANOLONE
     Indication: Perinatal depression
     Dosage: 20MG TWICE DAILY WITH EVENING MEAL
     Route: 050
     Dates: start: 20240418
  2. ZURZUVAE [Suspect]
     Active Substance: ZURANOLONE
     Dosage: 20MG ONCE DAILY WITH EVENING MEAL
     Route: 050
     Dates: start: 202404

REACTIONS (2)
  - Fatigue [Unknown]
  - Somnolence [Not Recovered/Not Resolved]

NARRATIVE: CASE EVENT DATE: 20240401
